FAERS Safety Report 9137795 (Version 1)
Quarter: 2013Q1

REPORT INFORMATION
  Report Type: Spontaneous
  Country: FR (occurrence: FR)
  Receive Date: 20130304
  Receipt Date: 20130304
  Transmission Date: 20140127
  Serious: Yes (Other)
  Sender: FDA-Public Use
  Company Number: FR-TEVA-388774ISR

PATIENT
  Age: 73 Year
  Sex: Female

DRUGS (12)
  1. OXALIPLATIN TEVA [Suspect]
     Indication: METASTASES TO PERITONEUM
     Dosage: 136 MILLIGRAM DAILY; FOLFOX
     Route: 042
     Dates: start: 20121204, end: 20121204
  2. OXALIPLATIN TEVA [Suspect]
     Dates: start: 20121218
  3. OXALIPLATIN TEVA [Suspect]
     Dates: start: 20130102
  4. FLUOROURACIL [Concomitant]
     Indication: METASTASES TO PERITONEUM
     Dosage: FOLFOX
     Dates: start: 20121204
  5. FLUOROURACIL [Concomitant]
     Dates: start: 20121218
  6. FLUOROURACIL [Concomitant]
     Dates: start: 20130102
  7. LEUCOVORINE [Concomitant]
     Indication: METASTASES TO PERITONEUM
     Dosage: FOLFOX
     Dates: start: 20121204
  8. LEUCOVORINE [Concomitant]
     Dates: start: 20121218
  9. LEUCOVORINE [Concomitant]
     Dates: start: 20130102
  10. AVASTIN [Concomitant]
     Indication: METASTASES TO PERITONEUM
     Dates: start: 20121204
  11. AVASTIN [Concomitant]
     Dates: start: 20121218
  12. AVASTIN [Concomitant]
     Dates: start: 20130102

REACTIONS (3)
  - Chills [Recovered/Resolved]
  - Livedo reticularis [Recovered/Resolved]
  - Hypertension [Recovered/Resolved]
